FAERS Safety Report 4801008-4 (Version None)
Quarter: 2005Q4

REPORT INFORMATION
  Report Type: 
  Country: None (occurrence: None)
  Receive Date: 20051012
  Receipt Date: 20051003
  Transmission Date: 20060501
  Serious: Yes (Hospitalization)
  Sender: FDA-Public Use
  Company Number: GXKR2005GB01742

PATIENT
  Age: 66 Year
  Sex: Female

DRUGS (5)
  1. METFORMIN HCL [Suspect]
  2. PREDNISONE [Suspect]
     Indication: ASTHMA
     Dosage: 20 MG, QD
  3. THEOPHYLLINE [Suspect]
  4. MONTELUKAST(MONTELUKAST) [Suspect]
     Indication: ASTHMA
     Dosage: 10 MG
  5. FLIXOTIDE   ALLEN + HANBURYS   (FLUTICASONE PROPIONATE) [Suspect]

REACTIONS (3)
  - ESCHERICHIA INFECTION [None]
  - GRAM STAIN POSITIVE [None]
  - PERITONITIS BACTERIAL [None]
